FAERS Safety Report 20820516 (Version 5)
Quarter: 2022Q3

REPORT INFORMATION
  Report Type: Report from Study
  Country: CA (occurrence: CA)
  Receive Date: 20220512
  Receipt Date: 20220722
  Transmission Date: 20221026
  Serious: Yes (Other)
  Sender: FDA-Public Use
  Company Number: CA-NOVARTISPH-NVSC2022CA075469

PATIENT
  Age: 59 Year
  Sex: Male
  Weight: 78.1 kg

DRUGS (24)
  1. PLACEBO [Suspect]
     Active Substance: UNSPECIFIED INGREDIENT
     Indication: Autoimmune hepatitis
     Dosage: UNK
     Route: 058
     Dates: start: 20190612
  2. IANALUMAB [Suspect]
     Active Substance: IANALUMAB
     Indication: Autoimmune hepatitis
     Dosage: UNK
     Route: 042
     Dates: start: 20190612
  3. KETOCONAZOLE [Concomitant]
     Active Substance: KETOCONAZOLE
     Indication: Folliculitis
     Dosage: UNK
     Route: 065
     Dates: start: 20200219
  4. CALCIUM CARBONATE [Concomitant]
     Active Substance: CALCIUM CARBONATE
     Indication: General physical condition
     Dosage: UNK
     Route: 065
     Dates: start: 2011
  5. LATANOPROST [Concomitant]
     Active Substance: LATANOPROST
     Indication: Glaucoma
     Dosage: UNK
     Route: 065
     Dates: start: 20200310
  6. CLINDAMYCIN [Concomitant]
     Active Substance: CLINDAMYCIN
     Indication: Folliculitis
     Dosage: UNK
     Route: 065
     Dates: start: 20200304
  7. SILDENAFIL [Concomitant]
     Active Substance: SILDENAFIL
     Indication: Erectile dysfunction
     Dosage: UNK
     Route: 065
     Dates: start: 20200303
  8. IVERMECTIN [Concomitant]
     Active Substance: IVERMECTIN
     Indication: Rosacea
     Dosage: UNK
     Route: 065
     Dates: start: 20200304
  9. CLARITIN [Concomitant]
     Active Substance: LORATADINE
     Indication: Seasonal allergy
     Dosage: UNK
     Route: 065
     Dates: start: 20200804
  10. VERSED [Concomitant]
     Active Substance: MIDAZOLAM HYDROCHLORIDE
     Indication: Medical procedure
     Dosage: UNK
     Route: 065
     Dates: start: 20211221, end: 20211221
  11. FENTANYL [Concomitant]
     Active Substance: FENTANYL
     Indication: Medical procedure
     Dosage: UNK
     Route: 065
     Dates: start: 20211221, end: 20211221
  12. POLYETHYLENE GLYCOL [Concomitant]
     Active Substance: POLYETHYLENE GLYCOL
     Indication: Medical procedure
     Dosage: UNK (ELECTROLYTE SOLUTION)
     Route: 065
     Dates: start: 20211220, end: 20211220
  13. VITAMIN D [Concomitant]
     Active Substance: VITAMIN D NOS
     Indication: General physical condition
     Dosage: UNK
     Route: 065
     Dates: start: 2011
  14. GLUCAGON [Concomitant]
     Active Substance: GLUCAGON
     Indication: Medical procedure
     Dosage: UNK
     Route: 065
     Dates: start: 20211221, end: 20211221
  15. CHLORHEXIDINE [Concomitant]
     Active Substance: CHLORHEXIDINE
     Indication: Medical procedure
     Dosage: UNK
     Route: 065
     Dates: start: 20220107, end: 20220107
  16. XYLOCAINE [Concomitant]
     Active Substance: LIDOCAINE HYDROCHLORIDE
     Indication: Medical procedure
     Dosage: UNK
     Route: 065
     Dates: start: 20220107, end: 20220107
  17. DEXILANT [Concomitant]
     Active Substance: DEXLANSOPRAZOLE
     Indication: Dyspepsia
     Dosage: UNK
     Route: 065
     Dates: start: 2015
  18. RISEDRONATE SODIUM [Concomitant]
     Active Substance: RISEDRONATE SODIUM
     Indication: General physical condition
     Dosage: UNK
     Route: 065
     Dates: start: 2011
  19. TAMSULOSIN [Concomitant]
     Active Substance: TAMSULOSIN
     Indication: Benign prostatic hyperplasia
     Dosage: UNK
     Route: 065
     Dates: start: 2016
  20. GLUCOSAMINE [Concomitant]
     Active Substance: GLUCOSAMINE
     Indication: General physical condition
     Dosage: UNK
     Route: 065
     Dates: start: 2014
  21. SYSTANE (HYPROMELLOSE 2910 (4000 MPA.S)) [Concomitant]
     Active Substance: HYPROMELLOSE 2910 (4000 MPA.S)
     Indication: Xerophthalmia
     Dosage: UNK
     Route: 065
     Dates: start: 2017
  22. MAGNESIUM [Concomitant]
     Active Substance: MAGNESIUM
     Indication: Muscle spasms
     Dosage: UNK
     Route: 065
     Dates: start: 20190903
  23. NEORAL [Concomitant]
     Active Substance: CYCLOSPORINE
     Indication: Autoimmune hepatitis
     Dosage: 125 MG, BID
     Route: 048
     Dates: start: 20220118
  24. TRAZODONE [Concomitant]
     Active Substance: TRAZODONE HYDROCHLORIDE
     Indication: Insomnia
     Dosage: UNK
     Route: 065
     Dates: start: 20191216

REACTIONS (1)
  - B-cell lymphoma [Not Recovered/Not Resolved]

NARRATIVE: CASE EVENT DATE: 20220108
